FAERS Safety Report 4707554-6 (Version None)
Quarter: 2005Q3

REPORT INFORMATION
  Report Type: 
  Country: None (occurrence: None)
  Receive Date: 20050706
  Receipt Date: 20050624
  Transmission Date: 20060218
  Serious: Yes (Other)
  Sender: FDA-Public Use
  Company Number: GB-JNJFOC-20050603814

PATIENT
  Sex: Female

DRUGS (2)
  1. TOPAMAX [Suspect]
     Indication: DRUG USE FOR UNKNOWN INDICATION
     Route: 065
  2. CARBAMAZEPINE [Concomitant]
     Indication: DRUG USE FOR UNKNOWN INDICATION

REACTIONS (1)
  - CATARACT [None]
